FAERS Safety Report 24540621 (Version 2)
Quarter: 2025Q1

REPORT INFORMATION
  Report Type: Spontaneous
  Country: GR (occurrence: GR)
  Receive Date: 20241023
  Receipt Date: 20250109
  Transmission Date: 20250409
  Serious: Yes (Disabling)
  Sender: BRISTOL-MYERS SQUIBB COMPANY
  Company Number: GR-BRISTOL-MYERS SQUIBB COMPANY-2024-160168

PATIENT
  Age: 79 Year
  Sex: Male

DRUGS (3)
  1. OPDIVO [Suspect]
     Active Substance: NIVOLUMAB
     Indication: Malignant melanoma
     Dates: start: 20240209, end: 20240416
  2. OPDIVO [Suspect]
     Active Substance: NIVOLUMAB
     Dates: start: 20240730, end: 20240827
  3. YERVOY [Suspect]
     Active Substance: IPILIMUMAB
     Indication: Malignant melanoma
     Dates: start: 20240209, end: 20240416

REACTIONS (1)
  - Blepharitis [Not Recovered/Not Resolved]

NARRATIVE: CASE EVENT DATE: 20240420
